FAERS Safety Report 6956026-7 (Version None)
Quarter: 2010Q3

REPORT INFORMATION
  Report Type: 
  Country: None (occurrence: None)
  Receive Date: 20100830
  Receipt Date: 20100825
  Transmission Date: 20110219
  Serious: Yes (Death, Other)
  Sender: FDA-Public Use
  Company Number: FR-CELGENEUS-056-50794-09101044

PATIENT
  Sex: Female

DRUGS (1)
  1. VIDAZA [Suspect]
     Indication: MYELODYSPLASTIC SYNDROME
     Route: 058
     Dates: start: 20081201, end: 20090827

REACTIONS (5)
  - BILE DUCT CANCER [None]
  - CHOLESTASIS [None]
  - CYTOLYTIC HEPATITIS [None]
  - DEATH [None]
  - METASTATIC NEOPLASM [None]
